FAERS Safety Report 6759370 (Version 2)
Quarter: 2020Q3

REPORT INFORMATION
  Report Type: Spontaneous
  Country: JP (occurrence: JP)
  Receive Date: 20080915
  Receipt Date: 20080918
  Transmission Date: 20201105
  Serious: Yes (Hospitalization)
  Sender: FDA-Public Use
  Company Number: JP-SANOFI-SYNTHELABO-A01200811180

PATIENT
  Age: 69 Year
  Sex: Female
  Weight: 55 kg

DRUGS (7)
  1. ISOVORIN [Suspect]
     Active Substance: LEUCOVORIN CALCIUM
     Indication: COLON CANCER
     Route: 041
     Dates: start: 20080826, end: 20080826
  2. MAGNESIUM OXIDE. [Concomitant]
     Active Substance: MAGNESIUM OXIDE
     Indication: CONSTIPATION
     Route: 048
     Dates: start: 200807
  3. 5?FU [Suspect]
     Active Substance: FLUOROURACIL
     Indication: COLON CANCER
     Dosage: 612 MG/BODY=400 MG/M2 IN BOLUS THEN 3672 MG/BODY=2400 MG/M2 AS CONTINUOUS INFUSION
     Route: 041
     Dates: start: 20080826, end: 20080826
  4. BIO?THREE [Concomitant]
     Active Substance: HERBALS
     Indication: CONSTIPATION
     Route: 048
     Dates: start: 200807
  5. ELPLAT [Suspect]
     Active Substance: OXALIPLATIN
     Indication: COLON CANCER
     Route: 041
     Dates: start: 20080826, end: 20080826
  6. FERROMIA [Concomitant]
     Active Substance: SODIUM FERROUS CITRATE
     Indication: IRON DEFICIENCY ANAEMIA
     Dosage: 100 MG
     Route: 048
     Dates: start: 200807
  7. CEDIRANIB. [Suspect]
     Active Substance: CEDIRANIB
     Indication: COLON CANCER
     Dosage: 2 DF
     Route: 048
     Dates: start: 20080826, end: 20080828

REACTIONS (1)
  - Dizziness [Recovering/Resolving]

NARRATIVE: CASE EVENT DATE: 20080828
